FAERS Safety Report 9216364 (Version 3)
Quarter: 2013Q3

REPORT INFORMATION
  Report Type: Spontaneous
  Country: US (occurrence: None)
  Receive Date: 20130402
  Receipt Date: 20130813
  Transmission Date: 20140515
  Serious: Yes (Other)
  Sender: FDA-Public Use
  Company Number: ACO_35108_2013

PATIENT
  Sex: Female
  Weight: 105.2 kg

DRUGS (15)
  1. AMPYRA [Suspect]
     Indication: PRODUCT USED FOR UNKNOWN INDICATION
  2. ROPINIROLE HYDROCHLORIDE (ROPINITROLE HYDROCHLORIDE) [Concomitant]
  3. FUROSEMIDE (FUROSEMIDE) [Concomitant]
  4. LORATIDINE [Concomitant]
  5. TRICOR (FENOFIBRATE) [Concomitant]
  6. DIOVAN (VALSARTAN) [Concomitant]
  7. COPAXONE (GLATIRAMER ACETATE) [Concomitant]
  8. NORTRIPTYLINE HCL (NORTRIPTYLINE HYDROCHLORIDE) [Concomitant]
  9. METFORMIN HCL (METFORMIN HYDROCHLORIDE) [Concomitant]
  10. OMEPRAZOLE (OMEPRAZOLE) [Concomitant]
  11. SIMVASTATIN (SIMVASTATIN) [Concomitant]
  12. GLIMEPIRIDE (GLIMEPIRIDE) [Concomitant]
  13. LEVOTHYROXINE SODIUM (LEVOTHYROXINE SODIUM) [Concomitant]
  14. METOPROLOL (METOPROLOL TARTRATE) [Concomitant]
  15. SPIRIVA (TIOTROPIUM BROMIDE) [Concomitant]

REACTIONS (1)
  - Non-Hodgkin^s lymphoma [None]
